FAERS Safety Report 16291072 (Version 1)
Quarter: 2019Q2

REPORT INFORMATION
  Report Type: Spontaneous
  Country: US (occurrence: US)
  Receive Date: 20190509
  Receipt Date: 20190509
  Transmission Date: 20190711
  Serious: Yes (Hospitalization)
  Sender: FDA-Public Use
  Company Number: US-BEH-2019102000

PATIENT
  Age: 13 Year
  Sex: Male

DRUGS (6)
  1. AMICAR [Concomitant]
     Active Substance: AMINOCAPROIC ACID
     Dosage: 0.25 G, UNK
     Route: 048
     Dates: start: 20101003, end: 20181022
  2. BENEFIX [Concomitant]
     Active Substance: COAGULATION FACTOR IX RECOMBINANT HUMAN\ISOPROPYL ALCOHOL
     Dosage: UNK
     Route: 065
     Dates: start: 20081112
  3. HUMATE-P [Suspect]
     Active Substance: HUMAN COAGULATION FACTOR VIII/VON WILLEBRAND FACTOR COMPLEX
     Indication: VON WILLEBRAND^S DISEASE
  4. LYSTEDA [Concomitant]
     Active Substance: TRANEXAMIC ACID
     Dosage: 650 MG, UNK
     Route: 065
     Dates: start: 20181205, end: 20190416
  5. HUMATE-P [Suspect]
     Active Substance: HUMAN COAGULATION FACTOR VIII/VON WILLEBRAND FACTOR COMPLEX
     Indication: FACTOR IX DEFICIENCY
     Dosage: 3050 RCOF UNITS (+/- 10%), PRN MOUTH/NOSE BLEED
     Route: 042
     Dates: start: 20101029
  6. AMICAR [Concomitant]
     Active Substance: AMINOCAPROIC ACID
     Dosage: 500 MG, UNK
     Route: 065
     Dates: start: 20130131, end: 20180730

REACTIONS (2)
  - Pyrexia [Not Recovered/Not Resolved]
  - Headache [Not Recovered/Not Resolved]

NARRATIVE: CASE EVENT DATE: 20190428
